FAERS Safety Report 25344364 (Version 2)
Quarter: 2025Q2

REPORT INFORMATION
  Report Type: Report from Study
  Country: FR (occurrence: FR)
  Receive Date: 20250521
  Receipt Date: 20250602
  Transmission Date: 20250717
  Serious: No
  Sender: SANDOZ
  Company Number: FR-SANDOZ-SDZ2025FR034509

PATIENT
  Age: 12 Year
  Sex: Male

DRUGS (1)
  1. OMNITROPE [Suspect]
     Active Substance: SOMATROPIN
     Indication: Product used for unknown indication
     Dosage: 1.1 MG, QD, 7D/7, STRENGTH 15
     Route: 058
     Dates: start: 20250508

REACTIONS (2)
  - Injection site pain [Not Recovered/Not Resolved]
  - Product knowledge deficit [Unknown]

NARRATIVE: CASE EVENT DATE: 20250508
